FAERS Safety Report 5510505-8 (Version None)
Quarter: 2007Q4

REPORT INFORMATION
  Report Type: 
  Country: None (occurrence: None)
  Receive Date: 20071108
  Receipt Date: 20071024
  Transmission Date: 20080405
  Serious: Yes (Hospitalization, Other)
  Sender: FDA-Public Use
  Company Number: CA-SHR-CA-2007-021754

PATIENT
  Age: 47 Year
  Sex: Female
  Weight: 72 kg

DRUGS (3)
  1. BETASERON [Suspect]
     Indication: RELAPSING-REMITTING MULTIPLE SCLEROSIS
     Dosage: 8 MIU, EVERY 2D
     Route: 058
     Dates: start: 20030429, end: 20070608
  2. BETASERON [Suspect]
     Dosage: 8 MIU, EVERY 2D
     Route: 058
     Dates: start: 20071008
  3. VITAMIN D [Concomitant]
     Route: 048

REACTIONS (12)
  - ABASIA [None]
  - ACCIDENT AT HOME [None]
  - BLEPHAROSPASM [None]
  - DEPRESSED MOOD [None]
  - FOOT FRACTURE [None]
  - INJECTION SITE ABSCESS [None]
  - INJECTION SITE PAIN [None]
  - INJECTION SITE WARMTH [None]
  - MOBILITY DECREASED [None]
  - MULTIPLE SCLEROSIS RELAPSE [None]
  - MYALGIA [None]
  - VISUAL DISTURBANCE [None]
